FAERS Safety Report 9462791 (Version 2)
Quarter: 2013Q3

REPORT INFORMATION
  Report Type: Report from Study
  Country: US (occurrence: US)
  Receive Date: 20130816
  Receipt Date: 20130905
  Transmission Date: 20140515
  Serious: Yes (Other)
  Sender: FDA-Public Use
  Company Number: US-ACTELION-A-US2013-87091

PATIENT
  Age: 50 Year
  Sex: Female

DRUGS (3)
  1. VELETRI [Suspect]
     Indication: PULMONARY ARTERIAL HYPERTENSION
     Dosage: 58 NG/KG, PER MIN
     Route: 042
     Dates: start: 200907
  2. SILDENAFIL [Concomitant]
  3. COUMADIN [Concomitant]

REACTIONS (1)
  - Deafness [Unknown]
